FAERS Safety Report 5472851-6 (Version None)
Quarter: 2007Q4

REPORT INFORMATION
  Report Type: 
  Country: None (occurrence: None)
  Receive Date: 20071001
  Receipt Date: 20070925
  Transmission Date: 20080405
  Serious: Yes (Death, Hospitalization)
  Sender: FDA-Public Use
  Company Number: A0683949A

PATIENT
  Age: 41 Year
  Sex: Male

DRUGS (2)
  1. ZOFRAN [Suspect]
     Indication: PROPHYLAXIS OF NAUSEA AND VOMITING
     Dosage: 8MG UNKNOWN
     Route: 048
     Dates: start: 20070601
  2. TEMODAR [Concomitant]

REACTIONS (1)
  - MALIGNANT MELANOMA [None]
